FAERS Safety Report 9492763 (Version 2)
Quarter: 2013Q3

REPORT INFORMATION
  Report Type: Report from Study
  Country: ES (occurrence: ES)
  Receive Date: 20130830
  Receipt Date: 20130904
  Transmission Date: 20140515
  Serious: Yes (Other)
  Sender: FDA-Public Use
  Company Number: ES-GLAXOSMITHKLINE-B0918297A

PATIENT
  Age: 42 Year
  Sex: Male

DRUGS (4)
  1. DABRAFENIB [Suspect]
     Indication: MALIGNANT MELANOMA
  2. TRAMETINIB [Suspect]
     Indication: MALIGNANT MELANOMA
  3. OMEPRAZOL [Concomitant]
     Indication: PROPHYLAXIS
     Dosage: 20MG TWICE PER DAY
     Route: 048
     Dates: start: 20130514
  4. ALPRAZOLAM [Concomitant]
     Indication: ANXIETY
     Dosage: 1MG TWICE PER DAY
     Route: 048
     Dates: start: 20130514

REACTIONS (2)
  - Pachymeningitis [Not Recovered/Not Resolved]
  - Subdural hygroma [Not Recovered/Not Resolved]
